FAERS Safety Report 9479021 (Version 1)
Quarter: 2013Q3

REPORT INFORMATION
  Report Type: Report from Study
  Country: US (occurrence: US)
  Receive Date: 20130827
  Receipt Date: 20130827
  Transmission Date: 20140515
  Serious: Yes (Hospitalization)
  Sender: FDA-Public Use
  Company Number: US-GLAXOSMITHKLINE-A1039056A

PATIENT
  Age: 78 Year
  Sex: Male
  Weight: 93.9 kg

DRUGS (15)
  1. OFATUMUMAB [Suspect]
     Indication: CHRONIC LYMPHOCYTIC LEUKAEMIA
     Dosage: 1000MG CYCLIC
     Route: 042
     Dates: start: 20130617
  2. CAMPATH [Suspect]
     Indication: CHRONIC LYMPHOCYTIC LEUKAEMIA
     Dosage: 300MG EVERY TWO WEEKS
     Route: 058
     Dates: start: 20130617
  3. ACYCLOVIR [Concomitant]
  4. ALLOPURINOL [Concomitant]
  5. AMLODIPINE [Concomitant]
  6. ASPIRIN [Concomitant]
  7. CILOSTAZOL [Concomitant]
  8. COMPAZINE [Concomitant]
  9. FLOMAX [Concomitant]
  10. LISINOPRIL [Concomitant]
  11. NITROGLYCERIN [Concomitant]
  12. PRESERVISION [Concomitant]
  13. SIMVASTATIN [Concomitant]
  14. SODIUM CHLORIDE [Concomitant]
  15. TMP SMX [Concomitant]

REACTIONS (1)
  - Hyponatraemia [Not Recovered/Not Resolved]
